FAERS Safety Report 13728869 (Version 1)
Quarter: 2017Q3

REPORT INFORMATION
  Report Type: Spontaneous
  Country: AR (occurrence: AR)
  Receive Date: 20170707
  Receipt Date: 20170707
  Transmission Date: 20171127
  Serious: Yes (Hospitalization, Other)
  Sender: FDA-Public Use
  Company Number: AR-ROCHE-1950027

PATIENT
  Age: 33 Year
  Sex: Female

DRUGS (6)
  1. PERJETA [Suspect]
     Active Substance: PERTUZUMAB
     Indication: BREAST CANCER
     Route: 065
  2. HERCEPTIN [Suspect]
     Active Substance: TRASTUZUMAB
     Indication: BREAST CANCER
     Route: 058
  3. DOCETAXEL. [Concomitant]
     Active Substance: DOCETAXEL
     Indication: BREAST CANCER
  4. HERCEPTIN [Suspect]
     Active Substance: TRASTUZUMAB
     Indication: BREAST CANCER
     Route: 042
  5. TAMOXIFEN [Concomitant]
     Active Substance: TAMOXIFEN
  6. LEUPROLIDE [Concomitant]
     Active Substance: LEUPROLIDE

REACTIONS (8)
  - Neutropenia [Recovered/Resolved]
  - Asthenia [Recovered/Resolved]
  - Drug ineffective [Unknown]
  - Infusion related reaction [Recovered/Resolved]
  - Blood potassium decreased [Recovered/Resolved]
  - Poor venous access [Recovered/Resolved]
  - Nausea [Recovered/Resolved]
  - Alopecia [Recovering/Resolving]
